FAERS Safety Report 4697135-5 (Version None)
Quarter: 2005Q2

REPORT INFORMATION
  Report Type: 
  Country: None (occurrence: None)
  Receive Date: 20050622
  Receipt Date: 20050615
  Transmission Date: 20051028
  Serious: Yes (Other)
  Sender: FDA-Public Use
  Company Number: JP-ROCHE-407631

PATIENT
  Age: 58 Year
  Sex: Male

DRUGS (4)
  1. PANALDINE [Suspect]
     Indication: DRUG USE FOR UNKNOWN INDICATION
     Route: 048
     Dates: start: 20000815
  2. NU-LOTAN [Concomitant]
     Route: 048
     Dates: start: 20000815
  3. CALCITRIOL [Concomitant]
     Route: 048
     Dates: start: 20000815
  4. FRANDOL [Concomitant]
     Route: 048
     Dates: start: 20000815

REACTIONS (3)
  - DRUG ERUPTION [None]
  - HAEMODIALYSIS [None]
  - LICHEN PLANUS [None]
